FAERS Safety Report 7325435-9 (Version None)
Quarter: 2011Q1

REPORT INFORMATION
  Report Type: 
  Country: None (occurrence: None)
  Receive Date: 20110302
  Receipt Date: 20110112
  Transmission Date: 20110831
  Serious: Yes (Other)
  Sender: FDA-Public Use
  Company Number: US-BAYER-201038352NA

PATIENT
  Sex: Female
  Weight: 71.655 kg

DRUGS (7)
  1. SYNTHROID [Concomitant]
     Indication: HYPOTHYROIDISM
     Dosage: UNK
  2. YASMIN [Suspect]
     Indication: PREMENSTRUAL SYNDROME
  3. YASMIN [Suspect]
     Indication: HORMONE LEVEL ABNORMAL
  4. ADVIL LIQUI-GELS [Concomitant]
  5. LEVOXYL [Concomitant]
     Indication: HYPOTHYROIDISM
     Dosage: UNK
     Dates: start: 20040101, end: 20100101
  6. YASMIN [Suspect]
     Indication: CONTRACEPTION
     Dosage: UNK UNK, UNK
     Route: 048
     Dates: start: 20010101, end: 20080901
  7. YASMIN [Suspect]
     Indication: ENDOMETRIOSIS

REACTIONS (2)
  - GALLBLADDER PAIN [None]
  - CHOLELITHIASIS [None]
